FAERS Safety Report 18435366 (Version 1)
Quarter: 2020Q4

REPORT INFORMATION
  Report Type: Spontaneous
  Country: PA (occurrence: PA)
  Receive Date: 20201027
  Receipt Date: 20201027
  Transmission Date: 20210114
  Serious: Yes (Death, Hospitalization, Other)
  Sender: FDA-Public Use
  Company Number: PA-ROCHE-2701305

PATIENT
  Age: 56 Year
  Sex: Female

DRUGS (26)
  1. POLATUZUMAB VEDOTIN. [Suspect]
     Active Substance: POLATUZUMAB VEDOTIN
     Indication: DIFFUSE LARGE B-CELL LYMPHOMA
     Dosage: DOSE AND FREQUENCY WERE NOT REPORTED (6 CYCLES)
     Route: 065
     Dates: start: 201908, end: 202001
  2. VINCRISTINE SULFATE. [Concomitant]
     Active Substance: VINCRISTINE SULFATE
     Indication: DIFFUSE LARGE B-CELL LYMPHOMA
     Dosage: DOSE AND FREQUENCY WERE NOT REPORTED (6 CYCLES)
     Route: 042
     Dates: start: 201411, end: 201504
  3. CYCLOPHOSPHAMIDE. [Concomitant]
     Active Substance: CYCLOPHOSPHAMIDE
     Indication: LYMPHADENOPATHY
     Dosage: DOSE AND FREQUENCY WERE NOT REPORTED (6 CYCLES)
     Route: 042
     Dates: start: 201411, end: 201504
  4. BENDAMUSTINE [Concomitant]
     Active Substance: BENDAMUSTINE
     Indication: LYMPHADENOPATHY
  5. CISPLATIN. [Concomitant]
     Active Substance: CISPLATIN
     Indication: DIFFUSE LARGE B-CELL LYMPHOMA
     Dosage: DOSE AND FREQUENCY WERE NOT REPORTED (3 CYCLES)
     Route: 042
     Dates: start: 201811, end: 201901
  6. RITUXIMAB. [Suspect]
     Active Substance: RITUXIMAB
     Indication: DIFFUSE LARGE B-CELL LYMPHOMA
     Dosage: DOSE AND FREQUENCY WERE NOT REPORTED (6 CYCLES)
     Route: 042
     Dates: start: 201411, end: 201504
  7. DEXAMETHASONE. [Concomitant]
     Active Substance: DEXAMETHASONE
     Indication: LYMPHADENOPATHY
     Dosage: DOSE AND FREQUENCY WERE NOT REPORTED (1 CYCLES)
     Route: 042
     Dates: start: 201903
  8. CISPLATIN. [Concomitant]
     Active Substance: CISPLATIN
     Indication: LYMPHADENOPATHY
     Dosage: DOSE AND FREQUENCY WERE NOT REPORTED (3 CYCLES)
     Route: 042
     Dates: start: 201904, end: 201906
  9. BENDAMUSTINE [Concomitant]
     Active Substance: BENDAMUSTINE
     Indication: DIFFUSE LARGE B-CELL LYMPHOMA
     Dosage: DOSE AND FREQUENCY WERE NOT REPORTED (6 CYCLES)
     Route: 042
     Dates: start: 201908, end: 202001
  10. RITUXIMAB. [Suspect]
     Active Substance: RITUXIMAB
     Dosage: DOSE AND FREQUENCY WERE NOT REPORTED (3 CYCLES)
     Route: 042
     Dates: start: 201904, end: 201906
  11. RITUXIMAB. [Suspect]
     Active Substance: RITUXIMAB
     Dosage: DOSE AND FREQUENCY WERE NOT REPORTED (6 CYCLES)
     Route: 042
     Dates: start: 201908, end: 202001
  12. POLATUZUMAB VEDOTIN. [Suspect]
     Active Substance: POLATUZUMAB VEDOTIN
     Indication: LYMPHADENOPATHY
  13. DOXORUBICIN [Concomitant]
     Active Substance: DOXORUBICIN
     Indication: LYMPHADENOPATHY
     Dosage: DOSE AND FREQUENCY WERE NOT REPORTED (1 CYCLE)
     Dates: start: 201903
  14. ETOPOSIDE. [Concomitant]
     Active Substance: ETOPOSIDE
     Indication: LYMPHADENOPATHY
  15. SOLU-MEDRONE [Concomitant]
     Active Substance: METHYLPREDNISOLONE SODIUM SUCCINATE
     Indication: DIFFUSE LARGE B-CELL LYMPHOMA
     Dosage: DOSE AND FREQUENCY WERE NOT REPORTED (3 CYCLES)
     Route: 042
     Dates: start: 201904, end: 201904
  16. VINCRISTINE SULFATE. [Concomitant]
     Active Substance: VINCRISTINE SULFATE
     Indication: LYMPHADENOPATHY
     Dosage: DOSE AND FREQUENCY WERE NOT REPORTED (1 CYCLE)
     Route: 042
     Dates: start: 201903
  17. PREDNISONE. [Concomitant]
     Active Substance: PREDNISONE
     Indication: LYMPHADENOPATHY
  18. ETOPOSIDE. [Concomitant]
     Active Substance: ETOPOSIDE
     Indication: DIFFUSE LARGE B-CELL LYMPHOMA
     Dosage: DOSE AND FREQUENCY WERE NOT REPORTED (3 CYCLES)
     Route: 042
     Dates: start: 201904, end: 201906
  19. RITUXIMAB. [Suspect]
     Active Substance: RITUXIMAB
     Indication: LYMPHADENOPATHY
     Dosage: DOSE AND FREQUENCY WERE NOT REPORTED (3 CYCLES)
     Route: 042
     Dates: start: 201811, end: 201901
  20. PREDNISONE. [Concomitant]
     Active Substance: PREDNISONE
     Indication: DIFFUSE LARGE B-CELL LYMPHOMA
     Dosage: DOSE AND FREQUENCY WERE NOT REPORTED (6 CYCLES)
     Route: 042
     Dates: start: 201411, end: 201504
  21. CYTARABINE. [Concomitant]
     Active Substance: CYTARABINE
     Indication: DIFFUSE LARGE B-CELL LYMPHOMA
     Dosage: DOSE AND FREQUENCY WERE NOT REPORTED (3 CYCLES)
     Route: 042
     Dates: start: 201811, end: 201901
  22. CYTARABINE. [Concomitant]
     Active Substance: CYTARABINE
     Indication: LYMPHADENOPATHY
     Dosage: DOSE AND FREQUENCY WERE NOT REPORTED (3 CYCLES)
     Route: 042
     Dates: start: 201904, end: 201906
  23. DOXORUBICIN [Concomitant]
     Active Substance: DOXORUBICIN
     Indication: DIFFUSE LARGE B-CELL LYMPHOMA
     Dosage: DOSE AND FREQUENCY WERE NOT REPORTED (6 CYCLES)
     Route: 042
     Dates: start: 201411, end: 201504
  24. CYCLOPHOSPHAMIDE. [Concomitant]
     Active Substance: CYCLOPHOSPHAMIDE
     Indication: DIFFUSE LARGE B-CELL LYMPHOMA
     Dosage: DOSE AND FREQUENCY WERE NOT REPORTED (6 CYCLES)
     Route: 042
     Dates: start: 201411, end: 201504
  25. DEXAMETHASONE. [Concomitant]
     Active Substance: DEXAMETHASONE
     Indication: DIFFUSE LARGE B-CELL LYMPHOMA
     Dosage: DOSE AND FREQUENCY WERE NOT REPORTED (3 CYCLES)
     Route: 042
     Dates: start: 201811, end: 201901
  26. SOLU-MEDRONE [Concomitant]
     Active Substance: METHYLPREDNISOLONE SODIUM SUCCINATE
     Indication: LYMPHADENOPATHY

REACTIONS (7)
  - Diffuse large B-cell lymphoma refractory [Unknown]
  - Arthralgia [Unknown]
  - Anaemia [Unknown]
  - Febrile neutropenia [Unknown]
  - Diarrhoea [Unknown]
  - Death [Fatal]
  - Mucosal inflammation [Unknown]

NARRATIVE: CASE EVENT DATE: 201909
